FAERS Safety Report 11073689 (Version 1)
Quarter: 2015Q2

REPORT INFORMATION
  Report Type: Spontaneous
  Country: BR (occurrence: BR)
  Receive Date: 20150428
  Receipt Date: 20150428
  Transmission Date: 20150821
  Serious: Yes (Other)
  Sender: FDA-Public Use
  Company Number: BR-009507513-1504BRA022253

PATIENT
  Age: 76 Year
  Sex: Female
  Weight: 83 kg

DRUGS (7)
  1. RENITEC [Suspect]
     Active Substance: ENALAPRIL MALEATE
     Indication: BLOOD PRESSURE INCREASED
     Dosage: 10 MG, Q12H
     Route: 048
  2. RENITEC [Suspect]
     Active Substance: ENALAPRIL MALEATE
     Dosage: 10 MG, Q12H
     Route: 048
     Dates: start: 201503
  3. SIMVASTATIN. [Suspect]
     Active Substance: SIMVASTATIN
     Indication: BLOOD CHOLESTEROL ABNORMAL
     Route: 048
  4. CRESTOR [Concomitant]
     Active Substance: ROSUVASTATIN CALCIUM
     Dosage: 5 MG, QD
     Route: 048
  5. RENITEC [Suspect]
     Active Substance: ENALAPRIL MALEATE
     Dosage: 10 MG, QD
     Route: 048
     Dates: end: 201503
  6. RENITEC [Suspect]
     Active Substance: ENALAPRIL MALEATE
     Indication: BLOOD PRESSURE INCREASED
     Dosage: 20 MG, Q12H
     Route: 048
     Dates: start: 1989
  7. RENITEC [Suspect]
     Active Substance: ENALAPRIL MALEATE
     Dosage: 10 MG, QD
     Dates: start: 201503, end: 201503

REACTIONS (7)
  - Onychomalacia [Not Recovered/Not Resolved]
  - Neoplasm malignant [Recovered/Resolved]
  - Alopecia [Not Recovered/Not Resolved]
  - Drug ineffective [Unknown]
  - Thyroid mass [Not Recovered/Not Resolved]
  - Retinal detachment [Unknown]
  - Expired product administered [Unknown]

NARRATIVE: CASE EVENT DATE: 2009
